FAERS Safety Report 18198597 (Version 1)
Quarter: 2020Q3

REPORT INFORMATION
  Report Type: Spontaneous
  Country: US (occurrence: US)
  Receive Date: 20200826
  Receipt Date: 20200826
  Transmission Date: 20201103
  Serious: Yes (Other)
  Sender: FDA-Public Use
  Company Number: PHHY2019US197681

PATIENT
  Age: 8 Year
  Sex: Male

DRUGS (1)
  1. TRAMETINIB [Suspect]
     Active Substance: TRAMETINIB
     Indication: GLIOMA
     Dosage: UNK
     Route: 065

REACTIONS (5)
  - Visual acuity reduced [Unknown]
  - Product use in unapproved indication [Unknown]
  - Glioma [Unknown]
  - Therapeutic response decreased [Unknown]
  - Malignant neoplasm progression [Unknown]
